FAERS Safety Report 14552308 (Version 1)
Quarter: 2018Q1

REPORT INFORMATION
  Report Type: Spontaneous
  Country: US (occurrence: US)
  Receive Date: 20180220
  Receipt Date: 20180220
  Transmission Date: 20180509
  Serious: No
  Sender: FDA-Public Use
  Company Number: US-IPSEN BIOPHARMACEUTICALS, INC.-2017-11963

PATIENT
  Sex: Female

DRUGS (4)
  1. SCULPTRA AESTHETIC [Suspect]
     Active Substance: POLYLACTIDE, L-
     Route: 065
     Dates: start: 20170101, end: 20170101
  2. SCULPTRA AESTHETIC [Suspect]
     Active Substance: POLYLACTIDE, L-
     Indication: PRODUCT USED FOR UNKNOWN INDICATION
     Route: 065
     Dates: start: 20160224, end: 20160224
  3. DYSPORT [Suspect]
     Active Substance: ABOBOTULINUMTOXINA
     Indication: SKIN COSMETIC PROCEDURE
     Dosage: NOT REPORTED
     Route: 065
  4. SCULPTRA AESTHETIC [Suspect]
     Active Substance: POLYLACTIDE, L-
     Route: 065
     Dates: start: 20160330, end: 20160330

REACTIONS (1)
  - Nodule [Not Recovered/Not Resolved]
